FAERS Safety Report 5384048-9 (Version None)
Quarter: 2007Q3

REPORT INFORMATION
  Report Type: 
  Country: None (occurrence: None)
  Receive Date: 20070711
  Receipt Date: 20070628
  Transmission Date: 20080115
  Serious: Yes (Hospitalization)
  Sender: FDA-Public Use
  Company Number: GB-AMGEN-US232901

PATIENT
  Age: 40 Year

DRUGS (3)
  1. ENBREL [Suspect]
     Indication: MIXED CONNECTIVE TISSUE DISEASE
     Dosage: 2.5G FREQUENCY UNKNOWN
     Route: 058
     Dates: start: 20041101
  2. PREDNISOLONE [Concomitant]
     Indication: MIXED CONNECTIVE TISSUE DISEASE
     Dosage: 5 MG FREQUENCY UNKNOWN
     Route: 048
     Dates: start: 20070101
  3. ALENDRONATE SODIUM [Concomitant]
     Indication: OSTEOPOROSIS
     Dosage: 70 MG FREQUENCY UNKNOWN
     Route: 048
     Dates: start: 20070101

REACTIONS (1)
  - LOWER RESPIRATORY TRACT INFECTION [None]
